FAERS Safety Report 7379206-8 (Version None)
Quarter: 2011Q1

REPORT INFORMATION
  Report Type: 
  Country: None (occurrence: None)
  Receive Date: 20110328
  Receipt Date: 20110324
  Transmission Date: 20110831
  Serious: Yes (Hospitalization, Other)
  Sender: FDA-Public Use
  Company Number: FR-AMGEN-QUU420541

PATIENT
  Age: 49 Year
  Sex: Male
  Weight: 88 kg

DRUGS (2)
  1. AUGMENTIN '125' [Concomitant]
     Dosage: 1 G, 2 TIMES/WK
     Route: 048
     Dates: end: 20100617
  2. NPLATE [Suspect]
     Indication: IDIOPATHIC THROMBOCYTOPENIC PURPURA
     Dosage: 3 A?G/KG, QWK
     Route: 058
     Dates: start: 20100604, end: 20100716

REACTIONS (14)
  - DRUG INEFFECTIVE [None]
  - AGRANULOCYTOSIS [None]
  - NEUTROPENIA [None]
  - HAEMATOMA [None]
  - APLASIA [None]
  - THROMBOCYTOPENIA [None]
  - ANTI-PLATELET ANTIBODY POSITIVE [None]
  - PANCYTOPENIA [None]
  - HAEMOGLOBIN DECREASED [None]
  - HYPERHIDROSIS [None]
  - MYELOFIBROSIS [None]
  - MYELODYSPLASTIC SYNDROME [None]
  - BONE MARROW MYELOGRAM ABNORMAL [None]
  - PURPURA [None]
